FAERS Safety Report 13435571 (Version 10)
Quarter: 2019Q3

REPORT INFORMATION
  Report Type: Spontaneous
  Country: US (occurrence: US)
  Receive Date: 20170413
  Receipt Date: 20190711
  Transmission Date: 20191004
  Serious: No
  Sender: FDA-Public Use
  Company Number: US-PFIZER INC-2016358563

PATIENT
  Age: 63 Year
  Sex: Female
  Weight: 105 kg

DRUGS (3)
  1. LYRICA [Suspect]
     Active Substance: PREGABALIN
     Indication: TYPE 2 DIABETES MELLITUS
     Dosage: 150 MG, 3X/DAY (1 EVERY 8 HR)
     Route: 048
     Dates: start: 2015
  2. LYRICA [Suspect]
     Active Substance: PREGABALIN
     Indication: NEURALGIA
     Dosage: UNK
  3. LYRICA [Suspect]
     Active Substance: PREGABALIN
     Indication: NEUROPATHY PERIPHERAL
     Dosage: 150 MG, DAILY (1 QSH, AT BED TIME)
     Route: 048

REACTIONS (5)
  - Back disorder [Unknown]
  - Intentional product use issue [Unknown]
  - Off label use [Unknown]
  - Product use issue [Unknown]
  - Eye disorder [Unknown]

NARRATIVE: CASE EVENT DATE: 20190201
